FAERS Safety Report 20827217 (Version 1)
Quarter: 2022Q2

REPORT INFORMATION
  Report Type: Spontaneous
  Country: US (occurrence: None)
  Receive Date: 20220513
  Receipt Date: 20220513
  Transmission Date: 20220720
  Serious: No
  Sender: FDA-Public Use
  Company Number: None

PATIENT
  Sex: Female

DRUGS (1)
  1. HUMIRA [Suspect]
     Active Substance: ADALIMUMAB
     Indication: Psoriatic arthropathy
     Dosage: 40MG EVERY 14 DAYS UNDER THE SKIN
     Route: 058
     Dates: start: 202201

REACTIONS (3)
  - Breast cancer female [None]
  - Cancer surgery [None]
  - Therapy cessation [None]
